FAERS Safety Report 6207823-7 (Version None)
Quarter: 2009Q2

REPORT INFORMATION
  Report Type: 
  Country: None (occurrence: None)
  Receive Date: 20090528
  Receipt Date: 20090521
  Transmission Date: 20091009
  Serious: Yes (Other)
  Sender: FDA-Public Use
  Company Number: US-JNJCH-2009014203

PATIENT
  Age: 60 Year
  Sex: Male
  Weight: 47.6 kg

DRUGS (3)
  1. BENADRYL [Suspect]
     Indication: PRURITUS
     Dosage: TEXT:UNSPECIFIED 3 + TIMES DAILY ON AND OFF
     Route: 061
  2. BENADRYL [Suspect]
     Indication: OFF LABEL USE
     Dosage: TEXT:1 TABLET THREE TIMES DAILY
     Route: 048
  3. ANALGESICS [Concomitant]
     Indication: PAIN
     Dosage: TEXT:UNSPECIFIED
     Route: 065

REACTIONS (4)
  - LOSS OF CONSCIOUSNESS [None]
  - MEDICATION ERROR [None]
  - OFF LABEL USE [None]
  - OVERDOSE [None]
